FAERS Safety Report 7021544-2 (Version None)
Quarter: 2010Q3

REPORT INFORMATION
  Report Type: 
  Country: None (occurrence: None)
  Receive Date: 20100928
  Receipt Date: 20100917
  Transmission Date: 20110219
  Serious: Yes (Hospitalization)
  Sender: FDA-Public Use
  Company Number: DSU-2010-04925

PATIENT
  Age: 66 Year
  Sex: Female
  Weight: 52.1637 kg

DRUGS (6)
  1. BENICAR HCT [Suspect]
     Indication: HYPERTENSION
     Dosage: 40/25MG (QD), PER ORAL
     Route: 048
     Dates: start: 20060101
  2. LEXAPRO (ESCITALOPRAM OXALATE) (ESCITALOPRAM OXALATE) [Concomitant]
  3. ANTICORT (PROCAINE HYDROCHLORIDE) (PROCAINE HYDROCHLORDE) [Concomitant]
  4. TRAZODONE (TRAZODONE) (TRAZODONE) [Concomitant]
  5. PRAVASTATIN [Concomitant]
  6. ASPIRIN (ACETYLSALICYLIC ACID) (01 MILLIGRAM) (ACETYLSALICYIC ACID) [Concomitant]

REACTIONS (1)
  - COELIAC DISEASE [None]
